FAERS Safety Report 7308966-7 (Version None)
Quarter: 2011Q1

REPORT INFORMATION
  Report Type: 
  Country: None (occurrence: None)
  Receive Date: 20110223
  Receipt Date: 20101228
  Transmission Date: 20110831
  Serious: Yes (Other)
  Sender: FDA-Public Use
  Company Number: US-BAYER-201026404NA

PATIENT
  Sex: Female
  Weight: 88.435 kg

DRUGS (3)
  1. YAZ [Suspect]
     Indication: PRODUCT USED FOR UNKNOWN INDICATION
     Dosage: UNK
     Route: 048
  2. TOPAMAX [Concomitant]
     Indication: MIGRAINE
     Dosage: 25 MG, BID
     Dates: start: 20050301
  3. YASMIN [Suspect]
     Indication: HYPERTRICHOSIS
     Dosage: UNK
     Route: 048
     Dates: start: 20040101, end: 20050601

REACTIONS (4)
  - CEREBROVASCULAR ACCIDENT [None]
  - VIITH NERVE PARALYSIS [None]
  - HEMIPARESIS [None]
  - EYE MOVEMENT DISORDER [None]
